FAERS Safety Report 15188428 (Version 1)
Quarter: 2018Q3

REPORT INFORMATION
  Report Type: Spontaneous
  Country: US (occurrence: US)
  Receive Date: 20180625
  Receipt Date: 20180625
  Transmission Date: 20181010
  Serious: Yes (Other)
  Sender: FDA-Public Use
  Company Number: None

PATIENT
  Age: 57 Year
  Sex: Male
  Weight: 67.5 kg

DRUGS (2)
  1. IBUPROFEN. [Concomitant]
     Active Substance: IBUPROFEN
  2. LIDOCAINE AND PRILOCAINE [Suspect]
     Active Substance: LIDOCAINE\PRILOCAINE
     Indication: PAIN
     Dosage: ?          QUANTITY:2 PUMPS;?
     Route: 061
     Dates: start: 20180403, end: 20180511

REACTIONS (2)
  - Intercepted drug dispensing error [None]
  - Product dispensing error [None]

NARRATIVE: CASE EVENT DATE: 20180511
